FAERS Safety Report 8816025 (Version 1)
Quarter: 2012Q4

REPORT INFORMATION
  Report Type: 
  Country: IL (occurrence: IL)
  Receive Date: 20120928
  Receipt Date: 20120928
  Transmission Date: 20130627
  Serious: Yes (Hospitalization)
  Sender: FDA-Public Use
  Company Number: IL-BAYER-2012-099070

PATIENT
  Age: 40 Year
  Sex: Female

DRUGS (1)
  1. MIRENA [Suspect]
     Dosage: 20 mcg/24hr, CONT
     Route: 015
     Dates: start: 201011, end: 20120512

REACTIONS (8)
  - Pelvic inflammatory disease [None]
  - Sepsis [None]
  - Pyrexia [None]
  - Chills [None]
  - Abdominal pain lower [None]
  - Blood pressure decreased [None]
  - Poor peripheral circulation [None]
  - Uterine cervical pain [None]
